FAERS Safety Report 26084606 (Version 1)
Quarter: 2025Q4

REPORT INFORMATION
  Report Type: Spontaneous
  Country: US (occurrence: US)
  Receive Date: 20251124
  Receipt Date: 20251124
  Transmission Date: 20260118
  Serious: No
  Sender: ABBVIE
  Company Number: US-ABBVIE-6557856

PATIENT
  Age: 15 Year
  Sex: Female
  Weight: 48.08 kg

DRUGS (3)
  1. HUMIRA [Suspect]
     Active Substance: ADALIMUMAB
     Indication: Juvenile idiopathic arthritis
     Dosage: FORM STRENGTH: 40 MILLIGRAM
     Route: 058
     Dates: start: 20251019
  2. VITAMIN D [Concomitant]
     Active Substance: VITAMIN D NOS
     Indication: Vitamin supplementation
     Dosage: UNKNOWN
  3. NAPROXEN [Concomitant]
     Active Substance: NAPROXEN
     Indication: Pain

REACTIONS (2)
  - Injection site haemorrhage [Recovered/Resolved]
  - Device leakage [Not Recovered/Not Resolved]

NARRATIVE: CASE EVENT DATE: 20251116
